FAERS Safety Report 4765779-8 (Version None)
Quarter: 2005Q3

REPORT INFORMATION
  Report Type: 
  Country: None (occurrence: None)
  Receive Date: 20050906
  Receipt Date: 20050406
  Transmission Date: 20060218
  Serious: Yes (Death)
  Sender: FDA-Public Use
  Company Number: AWBNIASPAND2004-86

PATIENT
  Age: 64 Year
  Sex: Male

DRUGS (7)
  1. NIASPAN [Suspect]
     Indication: DYSLIPIDAEMIA
     Dosage: 500 MG QD PO
     Route: 048
     Dates: start: 20040621, end: 20041201
  2. METFORMIN [Concomitant]
  3. ISCOVER [Concomitant]
  4. MAGNESIUM [Concomitant]
  5. ASPIRIN [Concomitant]
  6. RAMIRIL [Concomitant]
  7. CONCOR [Concomitant]

REACTIONS (1)
  - BRONCHIAL CARCINOMA [None]
